FAERS Safety Report 6725677-7 (Version None)
Quarter: 2010Q2

REPORT INFORMATION
  Report Type: 
  Country: None (occurrence: None)
  Receive Date: 20100514
  Receipt Date: 20100506
  Transmission Date: 20101027
  Serious: Yes (Other)
  Sender: FDA-Public Use
  Company Number: JP-JNJFOC-20100502416

PATIENT
  Age: 55 Year
  Sex: Male
  Weight: 60 kg

DRUGS (18)
  1. DUROTEP MT [Suspect]
     Indication: CANCER PAIN
     Route: 062
  2. DUROTEP MT [Suspect]
     Route: 062
  3. DUROTEP MT [Suspect]
     Route: 062
  4. FLUOROURACIL [Suspect]
     Indication: DRUG USE FOR UNKNOWN INDICATION
     Route: 042
  5. RANDA [Suspect]
     Indication: DRUG USE FOR UNKNOWN INDICATION
     Route: 042
  6. TAXOTERE [Suspect]
     Indication: DRUG USE FOR UNKNOWN INDICATION
     Route: 042
  7. FENTANYL [Concomitant]
     Indication: CANCER PAIN
     Route: 042
  8. KETALAR [Concomitant]
     Indication: CANCER PAIN
     Route: 042
  9. LIDOCAINE [Concomitant]
     Indication: CANCER PAIN
     Route: 042
  10. UNKNOWN MEDICATION [Concomitant]
     Route: 042
  11. LAXOBERON [Concomitant]
     Indication: PROPHYLAXIS
     Dosage: AS NEEDED
     Route: 048
  12. XYLOCAINE [Concomitant]
     Dosage: AS NEEDED
     Route: 062
  13. KYTRIL [Concomitant]
     Indication: PROPHYLAXIS
     Route: 042
  14. GRAN [Concomitant]
     Route: 062
  15. IMIPENEM AND CILASTATIN [Concomitant]
     Route: 042
  16. UNKNOWN MEDICATION [Concomitant]
     Route: 042
  17. DORMICUM [Concomitant]
     Dosage: AS NEEDED
     Route: 042
  18. ANEXATE [Concomitant]
     Dosage: AS NEEDED
     Route: 042

REACTIONS (4)
  - CONSTIPATION [None]
  - FEBRILE NEUTROPENIA [None]
  - HAEMOPTYSIS [None]
  - HEPATIC FUNCTION ABNORMAL [None]
